FAERS Safety Report 21287371 (Version 1)
Quarter: 2022Q3

REPORT INFORMATION
  Report Type: Spontaneous
  Country: US (occurrence: US)
  Receive Date: 20220902
  Receipt Date: 20220902
  Transmission Date: 20221026
  Serious: No
  Sender: FDA-Public Use
  Company Number: US-ABBVIE-22K-163-4320387-00

PATIENT
  Sex: Male

DRUGS (1)
  1. IMBRUVICA [Suspect]
     Active Substance: IBRUTINIB
     Indication: Chronic lymphocytic leukaemia
     Route: 048
     Dates: start: 20201005

REACTIONS (7)
  - Seasonal allergy [Unknown]
  - Nasal congestion [Unknown]
  - Sneezing [Unknown]
  - White blood cell count abnormal [Recovered/Resolved]
  - Back pain [Not Recovered/Not Resolved]
  - Asthenia [Unknown]
  - Product quality issue [Unknown]
